FAERS Safety Report 13617624 (Version 1)
Quarter: 2017Q2

REPORT INFORMATION
  Report Type: Spontaneous
  Country: US (occurrence: US)
  Receive Date: 20170606
  Receipt Date: 20170606
  Transmission Date: 20170830
  Serious: Yes (Other)
  Sender: FDA-Public Use
  Company Number: US-SA-2017SA051403

PATIENT
  Age: 77 Year
  Sex: Female
  Weight: 95.25 kg

DRUGS (13)
  1. LANTUS SOLOSTAR [Suspect]
     Active Substance: INSULIN GLARGINE
     Indication: TYPE 2 DIABETES MELLITUS
     Dosage: DOSE:36 UNIT(S)
     Route: 051
     Dates: start: 201702
  2. OMEPRAZOLE. [Concomitant]
     Active Substance: OMEPRAZOLE
     Indication: GASTRIC DISORDER
  3. METOPROLOL. [Concomitant]
     Active Substance: METOPROLOL
  4. SOLOSTAR [Suspect]
     Active Substance: DEVICE
     Indication: TYPE 2 DIABETES MELLITUS
     Dates: start: 201702
  5. JANUVIA [Concomitant]
     Active Substance: SITAGLIPTIN PHOSPHATE
     Indication: DIABETES MELLITUS
  6. LOVASTATIN. [Concomitant]
     Active Substance: LOVASTATIN
  7. GLIMEPIRIDE. [Concomitant]
     Active Substance: GLIMEPIRIDE
     Indication: DIABETES MELLITUS
  8. TRAMADOL. [Concomitant]
     Active Substance: TRAMADOL
     Indication: PAIN IN EXTREMITY
     Dosage: START DATE: LONG AGO
  9. TRAMADOL. [Concomitant]
     Active Substance: TRAMADOL
     Indication: BACK DISORDER
     Dosage: START DATE: LONG AGO
  10. FUROSEMIDE. [Concomitant]
     Active Substance: FUROSEMIDE
  11. GABAPENTIN. [Concomitant]
     Active Substance: GABAPENTIN
     Indication: LIMB INJURY
  12. WATER PILLS [Concomitant]
     Active Substance: UNSPECIFIED INGREDIENT
  13. LISINOPRIL. [Concomitant]
     Active Substance: LISINOPRIL

REACTIONS (6)
  - Wrong technique in product usage process [Unknown]
  - Injection site haemorrhage [Unknown]
  - Device issue [Unknown]
  - Cataract [Unknown]
  - Visual impairment [Unknown]
  - Blood glucose increased [Not Recovered/Not Resolved]

NARRATIVE: CASE EVENT DATE: 2017
